FAERS Safety Report 7437752-2 (Version None)
Quarter: 2011Q2

REPORT INFORMATION
  Report Type: 
  Country: None (occurrence: None)
  Receive Date: 20110426
  Receipt Date: 20110419
  Transmission Date: 20111010
  Serious: Yes (Death, Hospitalization)
  Sender: FDA-Public Use
  Company Number: SK-PFIZER INC-2011085261

PATIENT
  Age: 43 Year
  Sex: Male

DRUGS (5)
  1. TYGACIL [Concomitant]
     Dosage: UNK
     Dates: start: 20101011
  2. FLUCONAZOLE [Suspect]
     Dosage: UNK
     Dates: start: 20100922
  3. METRONIDAZOLE [Concomitant]
     Dosage: UNK
     Dates: start: 20100914
  4. AMPICILLIN [Concomitant]
     Dosage: UNK
     Dates: start: 20100916
  5. TIENAM [Concomitant]
     Dosage: UNK
     Dates: start: 20100914

REACTIONS (4)
  - DEATH [None]
  - HYPOTENSION [None]
  - PYREXIA [None]
  - HEPATOSPLENOMEGALY [None]
